FAERS Safety Report 12271975 (Version 1)
Quarter: 2016Q2

REPORT INFORMATION
  Report Type: Spontaneous
  Country: US (occurrence: US)
  Receive Date: 20160415
  Receipt Date: 20160415
  Transmission Date: 20160815
  Serious: No
  Sender: FDA-Public Use
  Company Number: US-FERRINGPH-2015FE01188

PATIENT
  Sex: Female

DRUGS (1)
  1. FIRMAGON [Suspect]
     Active Substance: DEGARELIX ACETATE

REACTIONS (3)
  - Accidental exposure to product [Not Recovered/Not Resolved]
  - No adverse event [Unknown]
  - Injury associated with device [Not Recovered/Not Resolved]
